FAERS Safety Report 24809083 (Version 2)
Quarter: 2025Q1

REPORT INFORMATION
  Report Type: Spontaneous
  Country: KR (occurrence: KR)
  Receive Date: 20250106
  Receipt Date: 20250121
  Transmission Date: 20250408
  Serious: Yes (Other)
  Sender: REGENERON
  Company Number: KR-BAYER-2025A001082

PATIENT
  Age: 67 Year
  Sex: Male

DRUGS (1)
  1. EYLEA HD [Suspect]
     Active Substance: AFLIBERCEPT
     Indication: Product used for unknown indication
     Dates: start: 202411

REACTIONS (2)
  - Ocular vasculitis [Recovering/Resolving]
  - Eye inflammation [Recovering/Resolving]
